FAERS Safety Report 12759595 (Version 1)
Quarter: 2016Q3

REPORT INFORMATION
  Report Type: Spontaneous
  Country: US (occurrence: US)
  Receive Date: 20160915
  Receipt Date: 20160915
  Transmission Date: 20161109
  Serious: No
  Sender: FDA-Public Use
  Company Number: None

PATIENT
  Age: 67 Year
  Sex: Female

DRUGS (1)
  1. IBRANCE [Suspect]
     Active Substance: PALBOCICLIB
     Indication: BREAST CANCER

REACTIONS (4)
  - Musculoskeletal disorder [None]
  - Urinary tract infection [None]
  - Vulvovaginal mycotic infection [None]
  - Muscle spasms [None]

NARRATIVE: CASE EVENT DATE: 20160826
